FAERS Safety Report 6203926-1 (Version None)
Quarter: 2009Q2

REPORT INFORMATION
  Report Type: 
  Country: None (occurrence: None)
  Receive Date: 20090527
  Receipt Date: 20090515
  Transmission Date: 20091009
  Serious: Yes (Hospitalization)
  Sender: FDA-Public Use
  Company Number: A0785918A

PATIENT
  Age: 55 Year
  Sex: Female
  Weight: 61.4 kg

DRUGS (2)
  1. AVANDIA [Suspect]
     Dosage: 4MG TWICE PER DAY
     Route: 065
     Dates: start: 20061219, end: 20070521
  2. METFORMIN HCL [Concomitant]
     Dates: start: 20061201

REACTIONS (1)
  - ACUTE MYOCARDIAL INFARCTION [None]
